FAERS Safety Report 14990102 (Version 1)
Quarter: 2018Q2

REPORT INFORMATION
  Report Type: Spontaneous
  Country: US (occurrence: US)
  Receive Date: 20180608
  Receipt Date: 20180608
  Transmission Date: 20180711
  Serious: No
  Sender: FDA-Public Use
  Company Number: US-ROCHE-2012513

PATIENT
  Sex: Female

DRUGS (12)
  1. MONTELUKAST [Concomitant]
     Active Substance: MONTELUKAST SODIUM
     Route: 065
  2. ACTEMRA [Suspect]
     Active Substance: TOCILIZUMAB
     Indication: RHEUMATOID ARTHRITIS
     Route: 058
     Dates: start: 201702
  3. SUCRALFATE. [Concomitant]
     Active Substance: SUCRALFATE
     Route: 065
  4. PREMPRO [Concomitant]
     Active Substance: ESTROGENS, CONJUGATED\MEDROXYPROGESTERONE ACETATE
     Dosage: 0.625-.2 MG
     Route: 065
  5. FLUTICASONE. [Concomitant]
     Active Substance: FLUTICASONE
     Route: 065
  6. CLONIDINE. [Concomitant]
     Active Substance: CLONIDINE
     Route: 065
  7. FLUCONAZOLE. [Concomitant]
     Active Substance: FLUCONAZOLE
     Route: 065
  8. FUROSEMIDE. [Concomitant]
     Active Substance: FUROSEMIDE
     Route: 065
  9. LEVOTHYROXINE. [Concomitant]
     Active Substance: LEVOTHYROXINE
     Route: 065
  10. MACROBID (UNITED STATES) [Concomitant]
     Route: 065
  11. VENLAFAXINE [Concomitant]
     Active Substance: VENLAFAXINE HYDROCHLORIDE
     Route: 065
  12. KCL [Concomitant]
     Active Substance: POTASSIUM CHLORIDE
     Route: 065

REACTIONS (2)
  - Ill-defined disorder [Unknown]
  - Urinary tract infection [Unknown]
